FAERS Safety Report 9963793 (Version 1)
Quarter: 2014Q1

REPORT INFORMATION
  Report Type: Report from Study
  Country: US (occurrence: US)
  Receive Date: 20140305
  Receipt Date: 20140305
  Transmission Date: 20141002
  Serious: No
  Sender: FDA-Public Use
  Company Number: US-ABBVIE-13P-163-1117061-00

PATIENT
  Age: 43 Year
  Sex: Female
  Weight: 91.25 kg

DRUGS (7)
  1. HUMIRA [Suspect]
     Indication: PITYRIASIS RUBRA PILARIS
     Dates: start: 20120920, end: 201303
  2. HUMIRA [Suspect]
     Dates: start: 2013, end: 201304
  3. HUMIRA [Suspect]
     Dates: start: 20130603
  4. TRAZODONE [Concomitant]
     Indication: SLEEP DISORDER THERAPY
  5. GABAPENTIN [Concomitant]
     Indication: NEURALGIA
  6. GABAPENTIN [Concomitant]
     Indication: MUSCLE FATIGUE
  7. PROAIR HFA [Concomitant]
     Indication: PNEUMONIA
     Dates: start: 2013

REACTIONS (5)
  - Pneumonia [Recovered/Resolved]
  - Cough [Recovered/Resolved]
  - Gastroenteritis viral [Recovered/Resolved]
  - Pityriasis rubra pilaris [Recovered/Resolved]
  - Sinus disorder [Recovered/Resolved]
